FAERS Safety Report 4897198-8 (Version None)
Quarter: 2006Q1

REPORT INFORMATION
  Report Type: 
  Country: None (occurrence: None)
  Receive Date: 20060127
  Receipt Date: 20060116
  Transmission Date: 20060701
  Serious: Yes (Hospitalization)
  Sender: FDA-Public Use
  Company Number: 2006-137576-NL

PATIENT
  Age: 85 Year
  Sex: Female

DRUGS (6)
  1. MIRTAZAPINE [Suspect]
     Indication: ABNORMAL BEHAVIOUR
     Dosage: 45 MG ORAL
     Route: 048
  2. PRAZEPAM [Suspect]
     Indication: ABNORMAL BEHAVIOUR
     Dosage: 2 DF ORAL
     Route: 048
  3. ZOPICLONE [Suspect]
     Dosage: 7.5 MG ORAL
     Route: 048
     Dates: end: 20050918
  4. HYDROXYZINE [Suspect]
     Indication: ABNORMAL BEHAVIOUR
     Dosage: 0.5 DF ORAL
     Route: 048
     Dates: end: 20050918
  5. POTASSIUM CHLORIDE [Concomitant]
  6. AMPHOTERICIN B [Concomitant]

REACTIONS (8)
  - BLOOD GLUCOSE INCREASED [None]
  - BLOOD SODIUM INCREASED [None]
  - DEHYDRATION [None]
  - DISTURBANCE IN ATTENTION [None]
  - DRUG INTERACTION [None]
  - RENAL FAILURE [None]
  - SOMNOLENCE [None]
  - URINARY TRACT INFECTION [None]
